FAERS Safety Report 14769578 (Version 2)
Quarter: 2018Q2

REPORT INFORMATION
  Report Type: Spontaneous
  Country: TR (occurrence: TR)
  Receive Date: 20180417
  Receipt Date: 20180502
  Transmission Date: 20180711
  Serious: Yes (Hospitalization, Other)
  Sender: FDA-Public Use
  Company Number: PHHY2018TR066288

PATIENT
  Age: 18 Year
  Sex: Male

DRUGS (1)
  1. EXJADE [Suspect]
     Active Substance: DEFERASIROX
     Indication: PRODUCT USED FOR UNKNOWN INDICATION
     Dosage: 125 MG, UNK
     Route: 048

REACTIONS (5)
  - Disturbance in social behaviour [Unknown]
  - Coma [Unknown]
  - Asthenia [Unknown]
  - Drug hypersensitivity [Unknown]
  - Vomiting [Unknown]
